FAERS Safety Report 14336750 (Version 5)
Quarter: 2018Q3

REPORT INFORMATION
  Report Type: Spontaneous
  Country: IT (occurrence: IT)
  Receive Date: 20171229
  Receipt Date: 20180907
  Transmission Date: 20181010
  Serious: Yes (Other)
  Sender: FDA-Public Use
  Company Number: IT-TEVA-2017-IT-834118

PATIENT
  Age: 35 Year
  Sex: Female

DRUGS (1)
  1. CLARITHROMYCIN. [Suspect]
     Active Substance: CLARITHROMYCIN
     Indication: PHARYNGOTONSILLITIS
     Dosage: 2 DOSAGE FORMS DAILY; 2 DF, QD
     Route: 048
     Dates: start: 20171023, end: 20171025

REACTIONS (2)
  - Swelling face [Unknown]
  - Erythema [Unknown]

NARRATIVE: CASE EVENT DATE: 20171025
